FAERS Safety Report 5097313-X (Version None)
Quarter: 2006Q3

REPORT INFORMATION
  Report Type: 
  Country: None (occurrence: None)
  Receive Date: 20060906
  Receipt Date: 20060816
  Transmission Date: 20061208
  Serious: Yes (Other)
  Sender: FDA-Public Use
  Company Number: US-GLAXOSMITHKLINE-A0616956A

PATIENT
  Age: 59 Year
  Sex: Male

DRUGS (3)
  1. LAMICTAL [Suspect]
     Indication: BIPOLAR DISORDER
     Dosage: 50MG PER DAY
     Route: 048
     Dates: start: 20060104, end: 20060601
  2. PAXIL CR [Suspect]
     Route: 048
     Dates: start: 20020101
  3. LITHIUM [Concomitant]

REACTIONS (7)
  - ANGER [None]
  - DEPRESSION [None]
  - DRUG ADMINISTRATION ERROR [None]
  - DRUG INEFFECTIVE [None]
  - INSOMNIA [None]
  - MOOD SWINGS [None]
  - SUICIDAL IDEATION [None]
